FAERS Safety Report 13892763 (Version 1)
Quarter: 2017Q3

REPORT INFORMATION
  Report Type: Spontaneous
  Country: US (occurrence: US)
  Receive Date: 20170822
  Receipt Date: 20170822
  Transmission Date: 20171127
  Serious: No
  Sender: FDA-Public Use
  Company Number: US-ROCHE-1348333

PATIENT
  Sex: Male

DRUGS (3)
  1. XGEVA [Concomitant]
     Active Substance: DENOSUMAB
     Indication: METASTASES TO BONE
     Route: 058
  2. HERCEPTIN [Suspect]
     Active Substance: TRASTUZUMAB
     Indication: SALIVARY GLAND CANCER
     Route: 042
     Dates: start: 2008
  3. XELODA [Suspect]
     Active Substance: CAPECITABINE
     Indication: SALIVARY GLAND CANCER
     Dosage: WEEK ON, WEEK OFF
     Route: 048
     Dates: start: 2008

REACTIONS (1)
  - Disease progression [Unknown]
